FAERS Safety Report 23914810 (Version 1)
Quarter: 2024Q2

REPORT INFORMATION
  Report Type: Spontaneous
  Country: US (occurrence: US)
  Receive Date: 20240529
  Receipt Date: 20240529
  Transmission Date: 20240716
  Serious: No
  Sender: FDA-Public Use
  Company Number: US-PERRIGO-24US002044

PATIENT
  Age: 8 Month
  Sex: Male

DRUGS (1)
  1. MINOXIDIL [Suspect]
     Active Substance: MINOXIDIL
     Indication: Accidental exposure to product by child
     Dosage: UNKNOWN, UNKNOWN
     Route: 061

REACTIONS (2)
  - Adverse drug reaction [Unknown]
  - Accidental exposure to product by child [Unknown]
